FAERS Safety Report 8515357-X (Version None)
Quarter: 2012Q3

REPORT INFORMATION
  Report Type: 
  Country: None (occurrence: None)
  Receive Date: 20120717
  Receipt Date: 20120703
  Transmission Date: 20120928
  Serious: Yes (Hospitalization)
  Sender: FDA-Public Use
  Company Number: US-ELI_LILLY_AND_COMPANY-US201207001964

PATIENT
  Age: 65 Year
  Sex: Female

DRUGS (11)
  1. CYCLOBENAZPRINE [Concomitant]
  2. TRAMADOL HCL [Concomitant]
     Indication: PAIN
  3. LISINOPRIL [Concomitant]
  4. LYRICA [Concomitant]
  5. PIROXICAM [Concomitant]
  6. LEVOTHYROXINE SODIUM [Concomitant]
  7. EXCEDRIN PM CAPLETS [Concomitant]
  8. CYMBALTA [Suspect]
     Indication: PAIN
     Dosage: 30 MG IN MORNING
     Dates: start: 20100101, end: 20111101
  9. CYMBALTA [Suspect]
     Dosage: 60 MG IN EVENING
     Dates: start: 20100101, end: 20111101
  10. CYMBALTA [Suspect]
     Dosage: 60 MG DAILY IN EVENING
     Dates: start: 20111201
  11. CLIMARA [Concomitant]

REACTIONS (5)
  - PERFORATED ULCER [None]
  - ALOPECIA [None]
  - MENTAL DISORDER [None]
  - MENTAL IMPAIRMENT [None]
  - INTENTIONAL DRUG MISUSE [None]
